FAERS Safety Report 18975079 (Version 2)
Quarter: 2021Q2

REPORT INFORMATION
  Report Type: Spontaneous
  Country: FR (occurrence: FR)
  Receive Date: 20210305
  Receipt Date: 20210401
  Transmission Date: 20210717
  Serious: Yes (Other)
  Sender: FDA-Public Use
  Company Number: FR-ORGANON-2102FRA003227

PATIENT
  Age: 73 Year
  Sex: Male

DRUGS (2)
  1. ATROVENT [Suspect]
     Active Substance: IPRATROPIUM BROMIDE
     Dosage: DOSE: NOT PROVIDED, Q12H (UNK UNK, BID NOON AND EVENING; NASAL 0.03%)
     Route: 045
     Dates: start: 20200120, end: 20200120
  2. NASONEX [Suspect]
     Active Substance: MOMETASONE FUROATE
     Dosage: 2 GTT DROPS, QD, 2 DROPS/MORNING (DROP (1/12 MILLILITRE))

REACTIONS (1)
  - Erectile dysfunction [Unknown]
